FAERS Safety Report 16539540 (Version 1)
Quarter: 2019Q3

REPORT INFORMATION
  Report Type: Spontaneous
  Country: US (occurrence: US)
  Receive Date: 20190705
  Receipt Date: 20190705
  Transmission Date: 20191004
  Serious: Yes (Hospitalization, Other)
  Sender: FDA-Public Use
  Company Number: None

PATIENT
  Age: 77 Year
  Sex: Male
  Weight: 82.35 kg

DRUGS (7)
  1. LISINOPRIL. [Concomitant]
     Active Substance: LISINOPRIL
  2. MIRALAX [Concomitant]
     Active Substance: POLYETHYLENE GLYCOL 3350
  3. LACTULOSE. [Concomitant]
     Active Substance: LACTULOSE
  4. ONDANSETRON HCL [Concomitant]
     Active Substance: ONDANSETRON HYDROCHLORIDE
  5. GAS-X [Concomitant]
     Active Substance: DIMETHICONE
  6. CAPECITABINE. [Suspect]
     Active Substance: CAPECITABINE
     Indication: BILE DUCT CANCER
     Route: 048
     Dates: start: 20190508, end: 20190627
  7. URSODIOL. [Concomitant]
     Active Substance: URSODIOL

REACTIONS (3)
  - Pulmonary embolism [None]
  - Disease progression [None]
  - Asthenia [None]

NARRATIVE: CASE EVENT DATE: 20190627
